FAERS Safety Report 8163552-4 (Version None)
Quarter: 2012Q1

REPORT INFORMATION
  Report Type: 
  Country: None (occurrence: None)
  Receive Date: 20120103
  Receipt Date: 20111121
  Transmission Date: 20120608
  Serious: No
  Sender: FDA-Public Use
  Company Number: AE-2011-003851

PATIENT
  Age: 52 Year
  Sex: Female
  Weight: 122.4712 kg

DRUGS (3)
  1. RIBAVIRIN [Concomitant]
  2. INCIVEK [Suspect]
     Dosage: 2250 MG (750 MG,EVERY 7-9 HOURS),ORAL
     Route: 048
     Dates: start: 20111107
  3. PEGASYS [Concomitant]

REACTIONS (2)
  - HYPOTENSION [None]
  - DIZZINESS [None]
